FAERS Safety Report 11344946 (Version 1)
Quarter: 2015Q3

REPORT INFORMATION
  Report Type: Spontaneous
  Country: US (occurrence: None)
  Receive Date: 20150805
  Receipt Date: 20150805
  Transmission Date: 20151125
  Serious: No
  Sender: FDA-Public Use
  Company Number: None

PATIENT
  Age: 6 Year
  Sex: Male
  Weight: 45.36 kg

DRUGS (4)
  1. GUANFACINS [Concomitant]
  2. RISPERIDONE. [Suspect]
     Active Substance: RISPERIDONE
     Indication: ANGER
     Dosage: 1 PILL
     Route: 048
  3. RISPERIDONE. [Suspect]
     Active Substance: RISPERIDONE
     Indication: AUTISM
     Dosage: 1 PILL
     Route: 048
  4. MONTELUKAST SOD GENERIC SINGULAIR [Concomitant]

REACTIONS (4)
  - Weight increased [None]
  - Gynaecomastia [None]
  - Abdominal pain upper [None]
  - Ear pain [None]
